FAERS Safety Report 7340728-7 (Version None)
Quarter: 2011Q1

REPORT INFORMATION
  Report Type: 
  Country: None (occurrence: None)
  Receive Date: 20110309
  Receipt Date: 20110225
  Transmission Date: 20110831
  Serious: Yes (Other)
  Sender: FDA-Public Use
  Company Number: JP-ROCHE-763308

PATIENT
  Sex: Female
  Weight: 3.4 kg

DRUGS (2)
  1. OSELTAMIVIR [Suspect]
     Indication: INFLUENZA
     Route: 064
     Dates: start: 20091202, end: 20091206
  2. FLU VACCINATION [Concomitant]

REACTIONS (4)
  - DRUG EXPOSURE DURING PREGNANCY [None]
  - CAESAREAN SECTION [None]
  - VENTRICULAR SEPTAL DEFECT [None]
  - NORMAL NEWBORN [None]
